FAERS Safety Report 7740078-0 (Version None)
Quarter: 2011Q3

REPORT INFORMATION
  Report Type: 
  Country: None (occurrence: None)
  Receive Date: 20110909
  Receipt Date: 20110907
  Transmission Date: 20111222
  Serious: Yes (Death)
  Sender: FDA-Public Use
  Company Number: NL-ROCHE-790465

PATIENT
  Sex: Female

DRUGS (8)
  1. OMEPRAZOLE [Concomitant]
     Dates: start: 20110601
  2. PACLITAXEL [Suspect]
     Route: 042
     Dates: start: 20110623, end: 20110623
  3. BEVACIZUMAB [Suspect]
     Route: 042
     Dates: start: 20110623, end: 20110623
  4. ZESTRIL [Concomitant]
     Dates: start: 20000731
  5. POLYETHYLENE GLYCOL [Concomitant]
     Dates: start: 20110623
  6. CODEINE SULFATE [Concomitant]
     Dates: start: 20110601
  7. SOTALOL HCL [Concomitant]
     Dates: start: 20000731
  8. HISTIDINE [Concomitant]
     Dosage: REPORTED AS BETAHISTIDINE
     Dates: start: 20070101

REACTIONS (1)
  - DYSPNOEA [None]
